FAERS Safety Report 8523664-X (Version None)
Quarter: 2012Q2

REPORT INFORMATION
  Report Type: 
  Country: None (occurrence: None)
  Receive Date: 20120406
  Receipt Date: 20100603
  Transmission Date: 20120825
  Serious: Yes (Disabling)
  Sender: FDA-Public Use
  Company Number: PHHY2010US31671

PATIENT
  Age: 85 Year
  Sex: Male
  Weight: 106 kg

DRUGS (3)
  1. TASIGNA [Suspect]
     Indication: CHRONIC MYELOID LEUKAEMIA
     Dosage: 400 MG, BID, ORAL, 200 MG, QD, ORAL , 200 MG, BID, ORAL
     Route: 048
     Dates: start: 20100401, end: 20100406
  2. TASIGNA [Suspect]
     Indication: CHRONIC MYELOID LEUKAEMIA
     Dosage: 400 MG, BID, ORAL, 200 MG, QD, ORAL , 200 MG, BID, ORAL
     Route: 048
     Dates: start: 20100528
  3. TASIGNA [Suspect]
     Indication: CHRONIC MYELOID LEUKAEMIA
     Dosage: 400 MG, BID, ORAL, 200 MG, QD, ORAL , 200 MG, BID, ORAL
     Route: 048
     Dates: start: 20100519, end: 20100528

REACTIONS (11)
  - MUSCLE STRAIN [None]
  - ORAL PAIN [None]
  - ASTHENIA [None]
  - OESOPHAGEAL PAIN [None]
  - MUSCULOSKELETAL STIFFNESS [None]
  - MUSCLE SPASMS [None]
  - GASTROOESOPHAGEAL REFLUX DISEASE [None]
  - ERUCTATION [None]
  - NAUSEA [None]
  - ABDOMINAL DISCOMFORT [None]
  - ABDOMINAL PAIN [None]
